FAERS Safety Report 18403597 (Version 1)
Quarter: 2020Q4

REPORT INFORMATION
  Report Type: Spontaneous
  Country: US (occurrence: US)
  Receive Date: 20201019
  Receipt Date: 20201019
  Transmission Date: 20210114
  Serious: Yes (Life-Threatening, Hospitalization, Disabling)
  Sender: FDA-Public Use
  Company Number: None

PATIENT
  Age: 41 Year
  Sex: Female
  Weight: 76.5 kg

DRUGS (5)
  1. BEVACIZUMAB-AWWB [Suspect]
     Active Substance: BEVACIZUMAB-AWWB
     Indication: OVARIAN CANCER
     Dates: start: 20201007
  2. RIVAROXABAN [Concomitant]
     Active Substance: RIVAROXABAN
     Dates: start: 20201005
  3. BEVACIZUMAB-AWWB [Suspect]
     Active Substance: BEVACIZUMAB-AWWB
     Indication: METASTASES TO BONE
     Dates: start: 20201007
  4. BEVACIZUMAB-AWWB [Suspect]
     Active Substance: BEVACIZUMAB-AWWB
     Indication: METASTASES TO LIVER
     Dates: start: 20201007
  5. DOXORUBICIN LIPOSOMAL [Concomitant]
     Active Substance: DOXORUBICIN
     Dates: start: 20201007

REACTIONS (2)
  - Deep vein thrombosis [None]
  - Ischaemic stroke [None]

NARRATIVE: CASE EVENT DATE: 20201019
